FAERS Safety Report 10648903 (Version 1)
Quarter: 2014Q4

REPORT INFORMATION
  Report Type: Spontaneous
  Country: DE (occurrence: DE)
  Receive Date: 20141212
  Receipt Date: 20141212
  Transmission Date: 20150529
  Serious: Yes (Other)
  Sender: FDA-Public Use
  Company Number: PHHY2014DE158281

PATIENT
  Age: 34 Year
  Sex: Female

DRUGS (2)
  1. METOPROLOL [Suspect]
     Active Substance: METOPROLOL
     Indication: ATRIAL FIBRILLATION
     Dosage: 50 MG, BID
     Route: 065
     Dates: start: 20121115, end: 20130810
  2. FOLIO                              /00349401/ [Concomitant]
     Indication: PRODUCT USED FOR UNKNOWN INDICATION
     Route: 065

REACTIONS (3)
  - Placental insufficiency [Unknown]
  - Maternal exposure during pregnancy [Unknown]
  - Uterine haematoma [Unknown]
